FAERS Safety Report 22821110 (Version 6)
Quarter: 2023Q4

REPORT INFORMATION
  Report Type: Report from Study
  Country: US (occurrence: US)
  Receive Date: 20230814
  Receipt Date: 20231221
  Transmission Date: 20240109
  Serious: No
  Sender: FDA-Public Use
  Company Number: US-002147023-NVSC2023US176951

PATIENT

DRUGS (1)
  1. KESIMPTA [Suspect]
     Active Substance: OFATUMUMAB
     Indication: Multiple sclerosis
     Dosage: UNK
     Route: 065

REACTIONS (10)
  - Muscle spasms [Unknown]
  - Balance disorder [Unknown]
  - Tremor [Unknown]
  - Fatigue [Unknown]
  - Paraesthesia [Unknown]
  - Mobility decreased [Unknown]
  - Dizziness [Unknown]
  - Feeling of body temperature change [Unknown]
  - Nausea [Unknown]
  - Headache [Unknown]
